FAERS Safety Report 6247912-4 (Version None)
Quarter: 2009Q2

REPORT INFORMATION
  Report Type: 
  Country: None (occurrence: None)
  Receive Date: 20090626
  Receipt Date: 20090615
  Transmission Date: 20091009
  Serious: Yes (Hospitalization)
  Sender: FDA-Public Use
  Company Number: PHHY2009GB19404

PATIENT
  Sex: Male

DRUGS (8)
  1. CLOZARIL [Suspect]
     Indication: SCHIZOPHRENIA
     Dosage: UNK
     Dates: start: 19920101
  2. CLOZARIL [Suspect]
     Dosage: 400 MG DAILY
     Dates: start: 20080602
  3. CITALOPRAM [Concomitant]
     Indication: ANXIETY
     Dosage: 20 MG, UNK
     Route: 048
  4. CITALOPRAM [Concomitant]
     Indication: DEPRESSION
  5. METFORMIN [Concomitant]
     Indication: TYPE 2 DIABETES MELLITUS
     Dosage: 2 GM DAILY
     Route: 048
  6. RAMIPRIL [Concomitant]
     Indication: HYPERTENSION
     Dosage: 1.25 MG DAILY
     Route: 048
  7. OXYBUTYNIN CHLORIDE [Concomitant]
     Indication: ENURESIS
     Dosage: 5 MG DAILY
     Route: 048
  8. SIMVASTATIN [Concomitant]
     Indication: HYPERCHOLESTEROLAEMIA
     Dosage: 20 MG DAILY
     Route: 048

REACTIONS (5)
  - DEPRESSED LEVEL OF CONSCIOUSNESS [None]
  - DROOLING [None]
  - POSTURE ABNORMAL [None]
  - SPEECH DISORDER [None]
  - TRANSIENT ISCHAEMIC ATTACK [None]
